FAERS Safety Report 10034931 (Version 1)
Quarter: 2014Q1

REPORT INFORMATION
  Report Type: Spontaneous
  Country: US (occurrence: US)
  Receive Date: 20140325
  Receipt Date: 20140325
  Transmission Date: 20141002
  Serious: No
  Sender: FDA-Public Use
  Company Number: US-009507513-1403USA001584

PATIENT
  Sex: Male

DRUGS (1)
  1. CORICIDIN HBP COLD AND FLU [Suspect]
     Indication: NASOPHARYNGITIS
     Dosage: UNK, UNKNOWN
     Route: 048

REACTIONS (1)
  - Drug effect decreased [Unknown]
